FAERS Safety Report 24314554 (Version 2)
Quarter: 2024Q3

REPORT INFORMATION
  Report Type: Spontaneous
  Country: US (occurrence: US)
  Receive Date: 20240913
  Receipt Date: 20240927
  Transmission Date: 20241016
  Serious: No
  Sender: Haleon PLC
  Company Number: US-HALEON-2196602

PATIENT
  Age: 67 Year
  Sex: Female

DRUGS (2)
  1. ALLI [Suspect]
     Active Substance: ORLISTAT
     Indication: Weight loss diet
     Dates: start: 20240904, end: 20240909
  2. ALLI [Suspect]
     Active Substance: ORLISTAT

REACTIONS (5)
  - Diarrhoea [Recovered/Resolved]
  - Product complaint [Unknown]
  - Incorrect dose administered [Unknown]
  - Counterfeit product administered [Unknown]
  - Product counterfeit [Unknown]

NARRATIVE: CASE EVENT DATE: 20240905
